FAERS Safety Report 7046211-0 (Version None)
Quarter: 2010Q4

REPORT INFORMATION
  Report Type: 
  Country: None (occurrence: None)
  Receive Date: 20101014
  Receipt Date: 20101007
  Transmission Date: 20110411
  Serious: Yes (Hospitalization)
  Sender: FDA-Public Use
  Company Number: A0764607A

PATIENT
  Age: 57 Year
  Sex: Male
  Weight: 113.6 kg

DRUGS (2)
  1. AVANDIA [Suspect]
     Route: 048
     Dates: start: 20000101, end: 20040101
  2. METFORMIN [Concomitant]
     Dates: start: 19880101, end: 20081124

REACTIONS (3)
  - CARDIAC DISORDER [None]
  - FRACTURE [None]
  - MYOCARDIAL INFARCTION [None]
